FAERS Safety Report 20672874 (Version 1)
Quarter: 2022Q2

REPORT INFORMATION
  Report Type: Spontaneous
  Country: CN (occurrence: CN)
  Receive Date: 20220405
  Receipt Date: 20220405
  Transmission Date: 20220721
  Serious: Yes (Hospitalization)
  Sender: FDA-Public Use
  Company Number: CN-STRIDES ARCOLAB LIMITED-2022SP003392

PATIENT
  Age: 32 Year
  Sex: Male

DRUGS (6)
  1. PREDNISOLONE [Suspect]
     Active Substance: PREDNISOLONE
     Indication: Stevens-Johnson syndrome
     Dosage: 0.5 MILLIGRAM/KILOGRAM PER DAY (TABLET)
     Route: 065
     Dates: start: 202008, end: 2020
  2. PREDNISOLONE [Suspect]
     Active Substance: PREDNISOLONE
     Dosage: 10 MILLIGRAM PER DAY (TAPERED)
     Route: 065
     Dates: start: 2020, end: 202009
  3. METHYLPREDNISOLONE [Suspect]
     Active Substance: METHYLPREDNISOLONE
     Indication: Stevens-Johnson syndrome
     Dosage: 60 MILLIGRAM PER DAY(1MG/KG/DAY)
     Route: 042
     Dates: start: 202008, end: 2020
  4. METHYLPREDNISOLONE [Suspect]
     Active Substance: METHYLPREDNISOLONE
     Dosage: 10 MILLIGRAM PER DAY (TAPERED)
     Route: 042
     Dates: end: 202009
  5. PEMBROLIZUMAB [Suspect]
     Active Substance: PEMBROLIZUMAB
     Indication: Hepatocellular carcinoma
     Dosage: 200 MILLIGRAM, EVERY 3 WEEKS
     Route: 042
     Dates: start: 20200430, end: 20200818
  6. ADALIMUMAB [Concomitant]
     Active Substance: ADALIMUMAB
     Indication: Stevens-Johnson syndrome
     Dosage: 80 MILLIGRAM
     Route: 058
     Dates: start: 2020

REACTIONS (1)
  - Porokeratosis [Unknown]

NARRATIVE: CASE EVENT DATE: 20200101
